FAERS Safety Report 5890980-X (Version None)
Quarter: 2008Q3

REPORT INFORMATION
  Report Type: 
  Country: None (occurrence: None)
  Receive Date: 20080922
  Receipt Date: 20080917
  Transmission Date: 20090109
  Serious: Yes (Other)
  Sender: FDA-Public Use
  Company Number: B0491176A

PATIENT
  Age: 50 Year
  Sex: Female
  Weight: 69 kg

DRUGS (2)
  1. AMOXICILLIN [Suspect]
     Indication: DYSPHAGIA
     Dosage: 1G TWICE PER DAY
     Route: 048
     Dates: start: 20071011, end: 20071012
  2. LEVOTHYROX [Concomitant]
     Indication: HYPOTHYROIDISM
     Route: 065

REACTIONS (9)
  - ARTHRALGIA [None]
  - BACK PAIN [None]
  - DRUG HYPERSENSITIVITY [None]
  - HAEMATURIA [None]
  - HEPATOCELLULAR INJURY [None]
  - INFLAMMATION [None]
  - OEDEMA PERIPHERAL [None]
  - PROTEINURIA [None]
  - VIRAL INFECTION [None]
